FAERS Safety Report 13129984 (Version 3)
Quarter: 2017Q2

REPORT INFORMATION
  Report Type: Spontaneous
  Country: US (occurrence: US)
  Receive Date: 20170119
  Receipt Date: 20170428
  Transmission Date: 20170830
  Serious: No
  Sender: FDA-Public Use
  Company Number: US-009507513-1701USA003819

PATIENT
  Age: 21 Year
  Sex: Female
  Weight: 117.1 kg

DRUGS (1)
  1. NEXPLANON [Suspect]
     Active Substance: ETONOGESTREL
     Indication: CONTRACEPTION
     Dosage: UNKNOWN
     Route: 059
     Dates: start: 20160920, end: 20170106

REACTIONS (7)
  - Hypoaesthesia [Unknown]
  - Metrorrhagia [Unknown]
  - Device breakage [Recovered/Resolved]
  - Weight increased [Unknown]
  - Device deployment issue [Unknown]
  - Implant site haemorrhage [Unknown]
  - Abdominal pain lower [Unknown]

NARRATIVE: CASE EVENT DATE: 201609
